FAERS Safety Report 10072092 (Version 1)
Quarter: 2014Q2

REPORT INFORMATION
  Report Type: Report from Study
  Country: US (occurrence: US)
  Receive Date: 20140411
  Receipt Date: 20140411
  Transmission Date: 20141212
  Serious: Yes (Hospitalization, Other)
  Sender: FDA-Public Use
  Company Number: PHHY2014US039905

PATIENT
  Sex: Female

DRUGS (5)
  1. EVEROLIMUS [Suspect]
     Indication: PERIPHERAL NERVE SHEATH TUMOUR MALIGNANT
     Dosage: 10 MG, QD
     Route: 048
     Dates: start: 20131122
  2. EVEROLIMUS [Suspect]
     Indication: OFF LABEL USE
  3. BEVACIZUMAB [Suspect]
     Indication: PERIPHERAL NERVE SHEATH TUMOUR MALIGNANT
     Dosage: 560 MG, QW2
     Route: 042
     Dates: start: 20131122
  4. BACTRIMEL [Concomitant]
     Dates: start: 20131122, end: 20140317
  5. PARACETAMOL [Concomitant]

REACTIONS (7)
  - Flank pain [Unknown]
  - Back pain [Unknown]
  - Urinary tract infection [Unknown]
  - Cholelithiasis [Unknown]
  - Nausea [Unknown]
  - Vomiting [Unknown]
  - Aphagia [Unknown]
